FAERS Safety Report 23980642 (Version 3)
Quarter: 2025Q1

REPORT INFORMATION
  Report Type: Report from Study
  Country: CA (occurrence: CA)
  Receive Date: 20240617
  Receipt Date: 20250301
  Transmission Date: 20250409
  Serious: Yes (Other)
  Sender: ABBVIE
  Company Number: CA-ABBVIE-5743690

PATIENT
  Age: 75 Year
  Sex: Female

DRUGS (11)
  1. VENETOCLAX [Suspect]
     Active Substance: VENETOCLAX
     Indication: Acute myeloid leukaemia
     Route: 048
     Dates: start: 20230524, end: 20230524
  2. VENETOCLAX [Suspect]
     Active Substance: VENETOCLAX
     Indication: Acute myeloid leukaemia
     Route: 048
     Dates: start: 20230523, end: 20230523
  3. VENETOCLAX [Suspect]
     Active Substance: VENETOCLAX
     Indication: Acute myeloid leukaemia
     Route: 048
     Dates: start: 20230525, end: 20230605
  4. VENETOCLAX [Suspect]
     Active Substance: VENETOCLAX
     Indication: Acute myeloid leukaemia
     Route: 048
     Dates: start: 20230704, end: 20230717
  5. COVID-19 vaccine mRNA [Concomitant]
     Indication: COVID-19 prophylaxis
  6. COVID-19 vaccine mRNA [Concomitant]
     Indication: COVID-19 prophylaxis
  7. COVID-19 vaccine mRNA [Concomitant]
     Indication: COVID-19 prophylaxis
  8. COVID-19 vaccine mRNA [Concomitant]
     Indication: COVID-19 prophylaxis
  9. COVID-19 vaccine mRNA [Concomitant]
     Indication: COVID-19 prophylaxis
  10. AZACITIDINE [Suspect]
     Active Substance: AZACITIDINE
     Indication: Acute myeloid leukaemia
     Route: 065
     Dates: start: 20230704, end: 20230710
  11. AZACITIDINE [Suspect]
     Active Substance: AZACITIDINE
     Indication: Acute myeloid leukaemia
     Route: 065
     Dates: start: 20230523, end: 20230529

REACTIONS (2)
  - Haemoglobin abnormal [Not Recovered/Not Resolved]
  - Anaemia [Recovered/Resolved]

NARRATIVE: CASE EVENT DATE: 20230529
